FAERS Safety Report 25553850 (Version 1)
Quarter: 2025Q3

REPORT INFORMATION
  Report Type: Spontaneous
  Country: CN (occurrence: CN)
  Receive Date: 20250715
  Receipt Date: 20250715
  Transmission Date: 20251021
  Serious: Yes (Death, Hospitalization, Other)
  Sender: BRISTOL-MYERS SQUIBB COMPANY
  Company Number: CN-BRISTOL-MYERS SQUIBB COMPANY-2025-092661

PATIENT
  Age: 77 Year
  Sex: Male
  Weight: 49.22 kg

DRUGS (9)
  1. NIVOLUMAB [Suspect]
     Active Substance: NIVOLUMAB
     Indication: Pleural mesothelioma malignant
     Route: 041
     Dates: start: 20250221
  2. NIVOLUMAB [Suspect]
     Active Substance: NIVOLUMAB
     Route: 041
     Dates: start: 20250325, end: 20250325
  3. NIVOLUMAB [Suspect]
     Active Substance: NIVOLUMAB
     Dosage: 40MG/4ML
     Route: 042
     Dates: start: 20250221
  4. NIVOLUMAB [Suspect]
     Active Substance: NIVOLUMAB
     Dates: start: 20250221
  5. NIVOLUMAB [Suspect]
     Active Substance: NIVOLUMAB
     Dosage: 40MG/4ML
     Route: 042
     Dates: start: 20250325
  6. NIVOLUMAB [Suspect]
     Active Substance: NIVOLUMAB
     Dates: start: 20250325
  7. YERVOY [Suspect]
     Active Substance: IPILIMUMAB
     Indication: Pleural mesothelioma malignant
     Dosage: 50MG?10ML?
     Route: 041
     Dates: start: 20250221, end: 20250221
  8. BEVACIZUMAB [Concomitant]
     Active Substance: BEVACIZUMAB
     Indication: Pleural mesothelioma malignant
     Route: 034
     Dates: start: 20250326
  9. SODIUM CHLORIDE [Concomitant]
     Active Substance: SODIUM CHLORIDE
     Indication: Product used for unknown indication

REACTIONS (4)
  - Myocarditis [Fatal]
  - Pneumonia [Fatal]
  - Off label use [Unknown]
  - Respiratory failure [Fatal]

NARRATIVE: CASE EVENT DATE: 20250401
